FAERS Safety Report 6131212-7 (Version None)
Quarter: 2009Q1

REPORT INFORMATION
  Report Type: 
  Country: None (occurrence: None)
  Receive Date: 20090325
  Receipt Date: 20090317
  Transmission Date: 20090719
  Serious: Yes (Hospitalization)
  Sender: FDA-Public Use
  Company Number: US-ELI_LILLY_AND_COMPANY-US200903004164

PATIENT
  Sex: Female

DRUGS (10)
  1. HUMALOG [Suspect]
     Dosage: UNK, AS NEEDED
  2. NEXIUM [Concomitant]
  3. SYNTHROID [Concomitant]
  4. MEDROL [Concomitant]
  5. COUMADIN [Concomitant]
  6. COLACE [Concomitant]
  7. LIPITOR [Concomitant]
  8. COREG [Concomitant]
  9. BUMEX [Concomitant]
  10. LANTUS [Concomitant]

REACTIONS (3)
  - CELLULITIS [None]
  - FALL [None]
  - FEMUR FRACTURE [None]
